FAERS Safety Report 11541185 (Version 7)
Quarter: 2016Q4

REPORT INFORMATION
  Report Type: Spontaneous
  Country: US (occurrence: US)
  Receive Date: 20150923
  Receipt Date: 20161121
  Transmission Date: 20170206
  Serious: Yes (Hospitalization)
  Sender: FDA-Public Use
  Company Number: US-ACTELION-A-NJ2015-124131

PATIENT
  Age: 65 Year
  Sex: Female

DRUGS (15)
  1. SILDENAFIL. [Concomitant]
     Active Substance: SILDENAFIL
     Dosage: 20 MG, UNK
     Dates: start: 20160426
  2. POTASSIUM [Concomitant]
     Active Substance: POTASSIUM
  3. VELETRI [Suspect]
     Active Substance: EPOPROSTENOL
     Indication: PULMONARY ARTERIAL HYPERTENSION
     Dosage: 25.8 NG/KG, PER MIN
     Route: 042
     Dates: start: 20150812
  4. VELETRI [Suspect]
     Active Substance: EPOPROSTENOL
     Dosage: 8 NG/KG, PER MIN
     Route: 042
     Dates: start: 20150707
  5. DERMADEX [Concomitant]
  6. ASPIRIN. [Concomitant]
     Active Substance: ASPIRIN
  7. TORSEMIDE. [Concomitant]
     Active Substance: TORSEMIDE
  8. ALLOPURINOL. [Concomitant]
     Active Substance: ALLOPURINOL
  9. LISINOPRIL. [Concomitant]
     Active Substance: LISINOPRIL
  10. OMEPRAZOLE. [Concomitant]
     Active Substance: OMEPRAZOLE
  11. VELETRI [Suspect]
     Active Substance: EPOPROSTENOL
     Dosage: 30.4 NG/KG, PER MIN
     Route: 042
  12. FLONASE [Concomitant]
     Active Substance: FLUTICASONE PROPIONATE
  13. CARVEDILOL. [Concomitant]
     Active Substance: CARVEDILOL
  14. GLIMEPIRIDE. [Concomitant]
     Active Substance: GLIMEPIRIDE
  15. EPLERENONE. [Concomitant]
     Active Substance: EPLERENONE

REACTIONS (7)
  - Chest pain [Not Recovered/Not Resolved]
  - Fluid overload [Recovered/Resolved]
  - Diarrhoea [Recovering/Resolving]
  - Dyspnoea [Not Recovered/Not Resolved]
  - Weight decreased [Unknown]
  - Oedema peripheral [Not Recovered/Not Resolved]
  - Weight increased [Not Recovered/Not Resolved]

NARRATIVE: CASE EVENT DATE: 20150910
